FAERS Safety Report 8399483-4 (Version None)
Quarter: 2012Q2

REPORT INFORMATION
  Report Type: 
  Country: None (occurrence: None)
  Receive Date: 20120531
  Receipt Date: 20120522
  Transmission Date: 20120825
  Serious: No
  Sender: FDA-Public Use
  Company Number: US-B.I. PHARMACEUTICALS,INC./RIDGEFIELD-2012-BP-11423BP

PATIENT
  Sex: Male

DRUGS (5)
  1. DIAZEPAM [Concomitant]
     Dosage: 10 MG
     Route: 048
  2. DIGOXIN [Concomitant]
     Dosage: 0.125 MG
     Route: 048
     Dates: start: 20120301
  3. METOPROLOL TARTRATE [Concomitant]
     Dosage: 50 MG
     Route: 048
     Dates: start: 20120301
  4. PRADAXA [Suspect]
     Indication: ATRIAL FIBRILLATION
     Dosage: 300 MG
     Route: 048
     Dates: start: 20120101
  5. MULTAQ [Concomitant]
     Indication: ATRIAL FIBRILLATION
     Dosage: 400 MG
     Route: 048
     Dates: start: 20120301

REACTIONS (1)
  - NASAL CONGESTION [None]
